FAERS Safety Report 4796722-3 (Version None)
Quarter: 2005Q4

REPORT INFORMATION
  Report Type: 
  Country: None (occurrence: None)
  Receive Date: 20051007
  Receipt Date: 20050801
  Transmission Date: 20060501
  Serious: Yes (Life-Threatening, Hospitalization, Other)
  Sender: FDA-Public Use
  Company Number: PAR_0205_2005

PATIENT
  Age: 78 Year
  Sex: Female

DRUGS (15)
  1. ISOPTIN [Suspect]
     Dosage: 240 MG QDAY PO
     Route: 048
     Dates: end: 20040806
  2. NORVIR [Suspect]
     Indication: HIV INFECTION
     Dosage: 100 MG PO
     Route: 048
     Dates: start: 20040428, end: 20040806
  3. REYATAZ [Suspect]
     Dosage: 600 MG QDAY PO
     Route: 048
     Dates: start: 20040428, end: 20040806
  4. RILMENDINE [Concomitant]
  5. CALCIUM FOLINATE [Concomitant]
  6. BACTRIM [Concomitant]
  7. AZITHROMYCIN [Concomitant]
  8. FENOFIBRATE [Concomitant]
  9. OMEPRAZOLE [Concomitant]
  10. RISEDRONATE SODIUM [Concomitant]
  11. LEKOVIT CA [Concomitant]
  12. GABAPENTIN [Concomitant]
  13. BROMAZEPAM [Concomitant]
  14. ERYTHROMYCIN [Concomitant]
  15. CAPCIT VIT D3 [Concomitant]

REACTIONS (14)
  - ATRIOVENTRICULAR BLOCK [None]
  - ATRIOVENTRICULAR BLOCK COMPLETE [None]
  - BUNDLE BRANCH BLOCK LEFT [None]
  - CARDIAC FAILURE [None]
  - CARDIOGENIC SHOCK [None]
  - COMA [None]
  - DRUG INEFFECTIVE [None]
  - DRUG INTERACTION [None]
  - ELECTROCARDIOGRAM QT PROLONGED [None]
  - HYPERTENSION [None]
  - HYPERTROPHIC CARDIOMYOPATHY [None]
  - SINOATRIAL BLOCK [None]
  - TREATMENT NONCOMPLIANCE [None]
  - VENTRICULAR ARRHYTHMIA [None]
